FAERS Safety Report 6128959-5 (Version None)
Quarter: 2009Q1

REPORT INFORMATION
  Report Type: 
  Country: None (occurrence: None)
  Receive Date: 20090324
  Receipt Date: 20090315
  Transmission Date: 20090719
  Serious: Yes (Hospitalization)
  Sender: FDA-Public Use
  Company Number: PHHY2009MX09499

PATIENT
  Sex: Male

DRUGS (2)
  1. DIOVAN HCT [Suspect]
     Indication: HYPERTENSION
     Dosage: 1 TABLET (320 MG VALSARTAN/25 MG HYDROCHLOROTHIAZIDE) PER DAY
     Route: 048
     Dates: start: 20051107
  2. DIOVAN HCT [Suspect]
     Dosage: 1 TABLET (160/12.5 MG) PER DAY
     Route: 048

REACTIONS (3)
  - BLOOD CREATININE INCREASED [None]
  - BLOOD UREA INCREASED [None]
  - DIALYSIS [None]
